FAERS Safety Report 15877927 (Version 3)
Quarter: 2019Q3

REPORT INFORMATION
  Report Type: Spontaneous
  Country: GB (occurrence: GB)
  Receive Date: 20190128
  Receipt Date: 20190810
  Transmission Date: 20191004
  Serious: Yes (Death, Other)
  Sender: FDA-Public Use
  Company Number: GB-BRISTOL-MYERS SQUIBB COMPANY-BMS-2019-006263

PATIENT
  Sex: Female

DRUGS (4)
  1. AZACTAM [Suspect]
     Active Substance: AZTREONAM
     Indication: ENTEROBACTER INFECTION
     Route: 065
  2. AZACTAM [Suspect]
     Active Substance: AZTREONAM
     Indication: ENTEROBACTER INFECTION
     Dosage: UNK
     Route: 065
  3. AZTREONAM LYSINE [Suspect]
     Active Substance: AZTREONAM LYSINE
     Indication: ENTEROBACTER INFECTION
     Dosage: UNK
     Route: 065
  4. ZAVICEFTA [Suspect]
     Active Substance: AVIBACTAM SODIUM\CEFTAZIDIME
     Indication: PRODUCT USED FOR UNKNOWN INDICATION
     Dosage: UNK
     Route: 065

REACTIONS (3)
  - Drug ineffective [Unknown]
  - Pathogen resistance [Unknown]
  - Death [Fatal]
